FAERS Safety Report 8114173-0 (Version None)
Quarter: 2012Q1

REPORT INFORMATION
  Report Type: 
  Country: None (occurrence: None)
  Receive Date: 20120205
  Receipt Date: 20120127
  Transmission Date: 20120608
  Serious: Yes (Other)
  Sender: FDA-Public Use
  Company Number: PHHY2012US008533

PATIENT
  Sex: Female

DRUGS (8)
  1. ESMOLOL HCL [Suspect]
     Dosage: 50 UG/KG/MIN
     Route: 041
  2. QUINAGLUTE [Suspect]
     Dosage: 324 MG, TID
  3. ISOPROTERENOL HCL [Suspect]
     Indication: VENTRICULAR TACHYCARDIA
     Dosage: 0.25 UG/MIN
  4. CILOSTAZOL [Suspect]
     Indication: VENTRICULAR TACHYCARDIA
     Dosage: 100 MG, BID
  5. MAGNESIUM [Suspect]
     Indication: VENTRICULAR TACHYCARDIA
     Dosage: 2 G/HOUR
  6. ISOPROTERENOL HCL [Suspect]
     Dosage: 1.0 UG/MIN
  7. METOPROLOL SUCCINATE [Suspect]
     Indication: VENTRICULAR TACHYCARDIA
     Dosage: 25 MG, BID
  8. AMIODARONE HCL [Suspect]
     Indication: VENTRICULAR TACHYCARDIA
     Dosage: 400 MG, QD

REACTIONS (6)
  - VENTRICULAR FIBRILLATION [None]
  - MATERNAL EXPOSURE DURING PREGNANCY [None]
  - VENTRICULAR EXTRASYSTOLES [None]
  - EXTRASYSTOLES [None]
  - TORSADE DE POINTES [None]
  - VENTRICULAR TACHYCARDIA [None]
